FAERS Safety Report 8175861-3 (Version None)
Quarter: 2012Q1

REPORT INFORMATION
  Report Type: 
  Country: None (occurrence: None)
  Receive Date: 20120301
  Receipt Date: 20120221
  Transmission Date: 20120608
  Serious: Yes (Life-Threatening, Hospitalization)
  Sender: FDA-Public Use
  Company Number: US-MPIJNJ-2012-00093

PATIENT
  Sex: Female
  Weight: 59 kg

DRUGS (3)
  1. MELPHALAN HYDROCHLORIDE [Suspect]
     Indication: AMYLOIDOSIS
  2. DEXAMETHASONE [Suspect]
     Indication: AMYLOIDOSIS
  3. VELCADE [Suspect]
     Indication: AMYLOIDOSIS
     Dosage: 1.0 MG/M2, CYCLIC
     Route: 042
     Dates: start: 20111223, end: 20120102

REACTIONS (3)
  - SEPSIS [None]
  - GRAFT VERSUS HOST DISEASE [None]
  - HYPOTENSION [None]
